FAERS Safety Report 21771525 (Version 1)
Quarter: 2022Q4

REPORT INFORMATION
  Report Type: Spontaneous
  Country: US (occurrence: None)
  Receive Date: 20221222
  Receipt Date: 20221222
  Transmission Date: 20230112
  Serious: Yes (Hospitalization)
  Sender: FDA-Public Use
  Company Number: None

PATIENT
  Age: 69 Year
  Sex: Female
  Weight: 55.43 kg

DRUGS (11)
  1. IBRANCE [Suspect]
     Active Substance: PALBOCICLIB
     Indication: Breast cancer female
     Dosage: OTHER FREQUENCY : 3W, 1W OFF;?
     Route: 048
  2. ATORVATATIN CALCIUM [Concomitant]
  3. BACITRACIN [Concomitant]
     Active Substance: BACITRACIN
  4. BENADRYL ALLERGY [Concomitant]
     Active Substance: DIPHENHYDRAMINE HYDROCHLORIDE
  5. CHLORASEPTIC SORE THROAT [Concomitant]
     Active Substance: PHENOL
  6. FASLODEX [Concomitant]
     Active Substance: FULVESTRANT
  7. ROBITUSSIN (GUAIFENESIN) [Concomitant]
     Active Substance: GUAIFENESIN
  8. SINGULAIR [Concomitant]
     Active Substance: MONTELUKAST SODIUM
  9. TYLENOL [Concomitant]
     Active Substance: ACETAMINOPHEN
  10. VITAMIN B12 [Concomitant]
     Active Substance: CYANOCOBALAMIN
  11. ZYRTEC [Concomitant]
     Active Substance: CETIRIZINE HYDROCHLORIDE

REACTIONS (1)
  - Influenza [None]
